FAERS Safety Report 5590250-3 (Version None)
Quarter: 2008Q1

REPORT INFORMATION
  Report Type: 
  Country: None (occurrence: None)
  Receive Date: 20080114
  Receipt Date: 20071101
  Transmission Date: 20080703
  Serious: Yes (Other)
  Sender: FDA-Public Use
  Company Number: US-ASTRAZENECA-2007UW25454

PATIENT
  Age: 64 Year
  Sex: Female
  Weight: 81.7 kg

DRUGS (5)
  1. PRILOSEC [Suspect]
     Route: 048
  2. FAMOTADINE [Concomitant]
  3. ASACOL [Concomitant]
  4. MV [Concomitant]
  5. ASPIRIN [Concomitant]

REACTIONS (1)
  - RETINAL TEAR [None]
